FAERS Safety Report 14785421 (Version 1)
Quarter: 2018Q2

REPORT INFORMATION
  Report Type: Spontaneous
  Country: VN (occurrence: VN)
  Receive Date: 20180420
  Receipt Date: 20180420
  Transmission Date: 20180711
  Serious: Yes (Other)
  Sender: FDA-Public Use
  Company Number: VN-ASTRAZENECA-2018SE47006

PATIENT
  Age: 64 Year
  Sex: Female
  Weight: 90 kg

DRUGS (3)
  1. GLUCOPHAGE [Concomitant]
     Active Substance: METFORMIN HYDROCHLORIDE
     Dosage: 1000.0MG UNKNOWN
  2. LANTUS [Concomitant]
     Active Substance: INSULIN GLARGINE
  3. FORXIGA [Suspect]
     Active Substance: DAPAGLIFLOZIN
     Indication: TYPE 2 DIABETES MELLITUS
     Route: 048

REACTIONS (1)
  - Haematuria [Recovered/Resolved]
